FAERS Safety Report 7206445-9 (Version None)
Quarter: 2011Q1

REPORT INFORMATION
  Report Type: 
  Country: None (occurrence: None)
  Receive Date: 20110103
  Receipt Date: 20101230
  Transmission Date: 20110831
  Serious: Yes (Other)
  Sender: FDA-Public Use
  Company Number: TR-BRISTOL-MYERS SQUIBB COMPANY-15463664

PATIENT
  Age: 30 Year
  Sex: Male

DRUGS (1)
  1. TRIAMCINOLONE ACETONIDE [Suspect]
     Indication: UVEITIS
     Dosage: INTRAVITREAL INJECTION
     Route: 031
     Dates: start: 20080101

REACTIONS (1)
  - CYTOMEGALOVIRUS CHORIORETINITIS [None]
